FAERS Safety Report 24267888 (Version 5)
Quarter: 2025Q1

REPORT INFORMATION
  Report Type: Spontaneous
  Country: US (occurrence: US)
  Receive Date: 20240830
  Receipt Date: 20250109
  Transmission Date: 20250409
  Serious: Yes (Other)
  Sender: PFIZER
  Company Number: US-PFIZER INC-PV202300127864

PATIENT
  Age: 66 Year
  Sex: Female
  Weight: 78 kg

DRUGS (3)
  1. PREMARIN [Suspect]
     Active Substance: ESTROGENS, CONJUGATED
     Indication: Atrophic vulvovaginitis
     Dosage: 0.5 G, Q (EVERY) MON/THU
     Route: 067
     Dates: start: 2014
  2. PREMARIN [Suspect]
     Active Substance: ESTROGENS, CONJUGATED
     Indication: Vaginal disorder
  3. PREMARIN [Suspect]
     Active Substance: ESTROGENS, CONJUGATED
     Indication: Genitourinary syndrome of menopause

REACTIONS (6)
  - Road traffic accident [Unknown]
  - Head injury [Unknown]
  - Rheumatoid arthritis [Unknown]
  - Memory impairment [Unknown]
  - Illness [Unknown]
  - Back disorder [Unknown]

NARRATIVE: CASE EVENT DATE: 20230101
